FAERS Safety Report 7073413-X (Version None)
Quarter: 2010Q4

REPORT INFORMATION
  Report Type: 
  Country: None (occurrence: None)
  Receive Date: 20101029
  Receipt Date: 20100614
  Transmission Date: 20110411
  Serious: No
  Sender: FDA-Public Use
  Company Number: A0865016A

PATIENT
  Sex: Female

DRUGS (12)
  1. ADVAIR DISKUS 100/50 [Suspect]
     Indication: CHRONIC OBSTRUCTIVE PULMONARY DISEASE
     Dosage: 1PUFF TWICE PER DAY
     Route: 055
  2. SPIRIVA [Concomitant]
  3. LASIX [Concomitant]
  4. CRESTOR [Concomitant]
  5. AMITRIPTYLINE HCL [Concomitant]
  6. NEXIUM [Concomitant]
  7. BYSTOLIC [Concomitant]
  8. LISINOPRIL [Concomitant]
  9. DIOVAN [Concomitant]
  10. ASCORBIC ACID [Concomitant]
  11. VITAMIN B6 [Concomitant]
  12. MULTI-VITAMIN [Concomitant]

REACTIONS (3)
  - GLOSSITIS [None]
  - PRODUCT QUALITY ISSUE [None]
  - STOMATITIS [None]
